FAERS Safety Report 11568668 (Version 1)
Quarter: 2015Q3

REPORT INFORMATION
  Report Type: Spontaneous
  Country: US (occurrence: US)
  Receive Date: 20150929
  Receipt Date: 20150929
  Transmission Date: 20151125
  Serious: Yes (Hospitalization)
  Sender: FDA-Public Use
  Company Number: US-PERRIGO-15US009737

PATIENT
  Age: 30 Year
  Sex: Female

DRUGS (1)
  1. ACETAMINOPHEN 650MG ER 544 [Suspect]
     Active Substance: ACETAMINOPHEN
     Indication: INTENTIONAL OVERDOSE
     Dosage: 10 G, SINGLE
     Route: 048

REACTIONS (8)
  - Haemolysis [Unknown]
  - Hyperbilirubinaemia [Unknown]
  - Ocular icterus [Unknown]
  - Haemolytic anaemia [Unknown]
  - Intentional overdose [Unknown]
  - Haemoglobinuria [Unknown]
  - Jaundice [Unknown]
  - Haptoglobin decreased [Unknown]
